FAERS Safety Report 9790022 (Version 2)
Quarter: 2014Q1

REPORT INFORMATION
  Report Type: Spontaneous
  Country: DK (occurrence: IT)
  Receive Date: 20131231
  Receipt Date: 20140123
  Transmission Date: 20141002
  Serious: Yes (Other)
  Sender: FDA-Public Use
  Company Number: IT-FRI-1000052563

PATIENT
  Age: 91 Year
  Sex: Female

DRUGS (11)
  1. CITALOPRAM ORAL SOLUTION [Suspect]
     Route: 048
     Dates: start: 20130620, end: 20130620
  2. TAVOR [Suspect]
     Indication: INSOMNIA
     Dosage: 1 MG
     Route: 048
     Dates: start: 20130101, end: 20130621
  3. ELAN [Concomitant]
     Dosage: 2 POSOLOGICAL UNITS
     Route: 048
  4. VENITRIN [Concomitant]
     Dosage: 1 POSOLOGICAL UNIT
     Route: 062
  5. CARDIOASPIRIN [Concomitant]
     Dosage: 100 MG
     Route: 048
  6. LANSOX [Concomitant]
     Dosage: 30 MG
     Route: 048
  7. RIOPAN [Concomitant]
     Dosage: 3 POSOLOGICAL UNITS
  8. LEVOPRAID [Concomitant]
     Dosage: 75 MG
     Route: 048
  9. KANRENOL [Concomitant]
     Dosage: 50 MG
     Route: 048
  10. LASIX [Concomitant]
     Dosage: 25 MG
     Route: 048
  11. CARVEDILOL [Concomitant]
     Dosage: 25 MG
     Route: 048

REACTIONS (1)
  - Sopor [Recovered/Resolved]
